FAERS Safety Report 7401931-0 (Version None)
Quarter: 2011Q2

REPORT INFORMATION
  Report Type: 
  Country: None (occurrence: None)
  Receive Date: 20110408
  Receipt Date: 20110314
  Transmission Date: 20111010
  Serious: No
  Sender: FDA-Public Use
  Company Number: US-B.I. PHARMACEUTICALS,INC./RIDGEFIELD-2010-BP-14321BP

PATIENT
  Sex: Male

DRUGS (10)
  1. MULTAQ [Concomitant]
     Indication: ATRIAL FIBRILLATION
     Dosage: 800 MG
     Route: 048
  2. OXYBUTYNIN [Concomitant]
     Indication: BLADDER DISORDER
     Dosage: 10 MG
     Dates: start: 20020101
  3. ATENOLOL [Concomitant]
     Indication: HYPERTENSION
     Dosage: 125 MG
     Route: 048
  4. OMEPRAZOLE [Concomitant]
     Dosage: 4 MG
  5. PRADAXA [Suspect]
     Indication: ATRIAL FIBRILLATION
     Dosage: 300 MG
     Route: 048
     Dates: start: 20101122
  6. LISINOPRIL AND HYDROCHLOROTHIAZIDE [Concomitant]
     Indication: HYPERTENSION
     Route: 048
     Dates: start: 20101001
  7. NIACIN [Concomitant]
     Indication: PROPHYLAXIS
     Dosage: 1000 MG
     Route: 048
     Dates: start: 20080101
  8. PROSCAR [Concomitant]
     Indication: PROPHYLAXIS
     Dosage: 5 MG
     Route: 048
  9. PLAVIX [Concomitant]
     Indication: ANTICOAGULANT THERAPY
     Dosage: 75 MG
     Route: 048
  10. EZETIMIBE/SIMVASTATIN [Concomitant]
     Indication: PROPHYLAXIS

REACTIONS (4)
  - FLATULENCE [None]
  - PARAESTHESIA [None]
  - ABNORMAL FAECES [None]
  - DIARRHOEA [None]
